FAERS Safety Report 4324193-X (Version None)
Quarter: 2004Q1

REPORT INFORMATION
  Report Type: 
  Country: None (occurrence: None)
  Receive Date: 20040326
  Receipt Date: 20040106
  Transmission Date: 20041129
  Serious: No
  Sender: FDA-Public Use
  Company Number: US-GLAXOSMITHKLINE-A0491724A

PATIENT
  Age: 49 Year
  Sex: Female

DRUGS (7)
  1. ADVAIR DISKUS 100/50 [Suspect]
     Indication: ASTHMA
     Dosage: 1PUFF TWICE PER DAY
     Route: 055
     Dates: start: 20031201
  2. CLARINEX [Concomitant]
  3. NORVASC [Concomitant]
  4. THYROID EXTRACT [Concomitant]
  5. SINGULAIR [Concomitant]
  6. UNKNOWN MEDICATION [Concomitant]
  7. ASTELIN [Concomitant]

REACTIONS (2)
  - DRUG INEFFECTIVE [None]
  - NERVOUSNESS [None]
